FAERS Safety Report 16345211 (Version 1)
Quarter: 2019Q2

REPORT INFORMATION
  Report Type: Spontaneous
  Country: US (occurrence: US)
  Receive Date: 20190523
  Receipt Date: 20190523
  Transmission Date: 20190711
  Serious: No
  Sender: FDA-Public Use
  Company Number: US-ROCHE-2289643

PATIENT
  Age: 14 Year
  Sex: Female

DRUGS (1)
  1. XOFLUZA [Suspect]
     Active Substance: BALOXAVIR MARBOXIL
     Indication: INFLUENZA
     Dosage: ONE DOSE
     Route: 065

REACTIONS (5)
  - Headache [Unknown]
  - Pain [Unknown]
  - Pyrexia [Unknown]
  - Malaise [Unknown]
  - Abdominal pain [Unknown]
